FAERS Safety Report 14944118 (Version 2)
Quarter: 2018Q2

REPORT INFORMATION
  Report Type: Spontaneous
  Country: US (occurrence: US)
  Receive Date: 20180528
  Receipt Date: 20180605
  Transmission Date: 20180711
  Serious: No
  Sender: FDA-Public Use
  Company Number: US-ELI_LILLY_AND_COMPANY-US201805010576

PATIENT
  Sex: Female
  Weight: 89 kg

DRUGS (5)
  1. ORENITRAM [Suspect]
     Active Substance: TREPROSTINIL
     Dosage: 12.5 MG, TID
     Route: 048
  2. ADCIRCA [Suspect]
     Active Substance: TADALAFIL
     Indication: PRODUCT USED FOR UNKNOWN INDICATION
     Dosage: UNK, UNKNOWN
     Route: 065
  3. REMODULIN [Suspect]
     Active Substance: TREPROSTINIL
     Indication: PULMONARY ARTERIAL HYPERTENSION
     Dosage: 80 NG, OTHER
     Route: 058
     Dates: start: 20160408
  4. OPSUMIT [Concomitant]
     Active Substance: MACITENTAN
     Indication: PRODUCT USED FOR UNKNOWN INDICATION
  5. ORENITRAM [Suspect]
     Active Substance: TREPROSTINIL
     Indication: PULMONARY ARTERIAL HYPERTENSION
     Dosage: 12.5 MG, TID
     Route: 048
     Dates: start: 20180507

REACTIONS (8)
  - Pain in jaw [Unknown]
  - Abdominal pain upper [Unknown]
  - Flushing [Unknown]
  - Pain in extremity [Unknown]
  - Headache [Unknown]
  - Decreased appetite [Unknown]
  - Arthralgia [Unknown]
  - Nausea [Unknown]
